FAERS Safety Report 19602202 (Version 1)
Quarter: 2021Q3

REPORT INFORMATION
  Report Type: Spontaneous
  Country: CA (occurrence: CA)
  Receive Date: 20210723
  Receipt Date: 20210723
  Transmission Date: 20211014
  Serious: Yes (Hospitalization, Other)
  Sender: FDA-Public Use
  Company Number: CA-ASTRAZENECA-2021A624839

PATIENT
  Age: 48 Year
  Sex: Male
  Weight: 100 kg

DRUGS (4)
  1. ADALAT XL SRT [Concomitant]
  2. FORXIGA [Suspect]
     Active Substance: DAPAGLIFLOZIN
     Indication: TYPE 2 DIABETES MELLITUS
     Route: 048
  3. TRAJENTA [Concomitant]
     Active Substance: LINAGLIPTIN
  4. ACETYLSALICYLIC ACID [Concomitant]
     Active Substance: ASPIRIN

REACTIONS (6)
  - Abdominal pain [Unknown]
  - Diabetic ketoacidosis [Unknown]
  - Vomiting [Unknown]
  - Appendicitis [Unknown]
  - Decreased appetite [Unknown]
  - Pain [Unknown]
